FAERS Safety Report 19680686 (Version 2)
Quarter: 2021Q3

REPORT INFORMATION
  Report Type: Report from Study
  Country: FR (occurrence: FR)
  Receive Date: 20210810
  Receipt Date: 20210820
  Transmission Date: 20211014
  Serious: Yes (Other)
  Sender: FDA-Public Use
  Company Number: FR-ROCHE-2764168

PATIENT
  Age: 66 Year
  Sex: Female
  Weight: 82 kg

DRUGS (4)
  1. PACLITAXEL. [Suspect]
     Active Substance: PACLITAXEL
     Indication: CERVIX CARCINOMA
     Dosage: DATE OF LAST DOSE: 311.50  10/SEP/2020
     Route: 042
     Dates: start: 20200417
  2. ATEZOLIZUMAB. [Suspect]
     Active Substance: ATEZOLIZUMAB
     Indication: CERVIX CARCINOMA
     Dosage: DATE OF LAST ADMINISTRATION DOSE (1200 MG): 19/FEB/2021?DATE OF LAST ADMINISTRATION DOSE (1200 MG):
     Route: 041
     Dates: start: 20200417
  3. CISPLATINE [Suspect]
     Active Substance: CISPLATIN
     Indication: CERVIX CARCINOMA
     Dosage: DATE OF LAST TREATMENT DOSE (89 MG): 03/NOV/2020. (AK 01/MAR/2021)
     Route: 042
     Dates: start: 20200417
  4. BEVACIZUMAB. [Suspect]
     Active Substance: BEVACIZUMAB
     Indication: CERVIX CARCINOMA
     Dosage: DATE OF LAST ADMINISTRATION DOSE (1237.5 MG): 19/FEB/2021.?DATE OF LAST ADMINISTRATION DOSE (1200 MG
     Route: 042
     Dates: start: 20200417

REACTIONS (3)
  - Hypertension [Not Recovered/Not Resolved]
  - Proteinuria [Recovered/Resolved]
  - Hepatobiliary disease [Not Recovered/Not Resolved]

NARRATIVE: CASE EVENT DATE: 20210127
